FAERS Safety Report 9098317 (Version 1)
Quarter: 2013Q1

REPORT INFORMATION
  Report Type: Spontaneous
  Country: US (occurrence: US)
  Receive Date: 20130213
  Receipt Date: 20130213
  Transmission Date: 20140127
  Serious: Yes (Other)
  Sender: FDA-Public Use
  Company Number: US-ROCHE-1103570

PATIENT
  Sex: Male

DRUGS (2)
  1. AVASTIN [Suspect]
     Indication: RECTOSIGMOID CANCER
     Route: 065
  2. 5-FLUOROURACIL [Concomitant]
     Route: 065

REACTIONS (1)
  - Disease progression [Unknown]
